FAERS Safety Report 4290434-0 (Version None)
Quarter: 2004Q1

REPORT INFORMATION
  Report Type: 
  Country: None (occurrence: None)
  Receive Date: 20040209
  Receipt Date: 20040123
  Transmission Date: 20041129
  Serious: Yes (Hospitalization)
  Sender: FDA-Public Use
  Company Number: 8005081

PATIENT
  Age: 37 Year
  Sex: Female

DRUGS (2)
  1. KEPPRA [Suspect]
     Indication: EPILEPSY
     Dosage: 500 MG 2/D PO
     Route: 048
  2. CARBABETA - SLOW RELEASE ^BETAPHARM^ [Suspect]
     Indication: EPILEPSY
     Dosage: 1250 MG

REACTIONS (5)
  - CAESAREAN SECTION [None]
  - CONGENITAL FOOT MALFORMATION [None]
  - CONGENITAL HYPERTRICHOSIS [None]
  - MATERNAL DRUGS AFFECTING FOETUS [None]
  - POSTMATURE BABY [None]
